FAERS Safety Report 12640390 (Version 5)
Quarter: 2018Q4

REPORT INFORMATION
  Report Type: Report from Study
  Country: US (occurrence: US)
  Receive Date: 20160810
  Receipt Date: 20181127
  Transmission Date: 20190204
  Serious: Yes (Hospitalization)
  Sender: FDA-Public Use
  Company Number: US-EISAI MEDICAL RESEARCH-EC-2016-017676

PATIENT
  Age: 57 Year
  Sex: Female

DRUGS (6)
  1. LENVIMA [Suspect]
     Active Substance: LENVATINIB
     Route: 048
     Dates: end: 2018
  2. LENVIMA [Suspect]
     Active Substance: LENVATINIB
     Indication: THYROID CANCER
     Dosage: DECREASED DOSE (DOSE UNKNOWN)
     Route: 048
     Dates: start: 20160323, end: 2018
  3. LENVIMA [Suspect]
     Active Substance: LENVATINIB
     Route: 048
     Dates: start: 20160715, end: 20160727
  4. LENVIMA [Suspect]
     Active Substance: LENVATINIB
     Dosage: REDUCED DOSE
     Route: 048
     Dates: start: 2018, end: 2018
  5. LENVIMA [Suspect]
     Active Substance: LENVATINIB
     Route: 048
     Dates: start: 201810
  6. LENVIMA [Suspect]
     Active Substance: LENVATINIB
     Route: 048
     Dates: start: 2016, end: 201610

REACTIONS (14)
  - Haemorrhage [Not Recovered/Not Resolved]
  - Platelet count decreased [Recovering/Resolving]
  - Alopecia [Unknown]
  - Constipation [Not Recovered/Not Resolved]
  - Abdominal pain upper [Not Recovered/Not Resolved]
  - Hypertension [Recovered/Resolved]
  - Abdominal discomfort [Not Recovered/Not Resolved]
  - Fatigue [Not Recovered/Not Resolved]
  - Rash [Not Recovered/Not Resolved]
  - Folliculitis [Recovering/Resolving]
  - Decreased appetite [Recovered/Resolved]
  - Contusion [Not Recovered/Not Resolved]
  - Blister [Not Recovered/Not Resolved]
  - Musculoskeletal pain [Not Recovered/Not Resolved]

NARRATIVE: CASE EVENT DATE: 201606
